FAERS Safety Report 15676698 (Version 5)
Quarter: 2019Q4

REPORT INFORMATION
  Report Type: Report from Study
  Country: CN (occurrence: CN)
  Receive Date: 20181130
  Receipt Date: 20191211
  Transmission Date: 20200122
  Serious: Yes (Life-Threatening, Hospitalization)
  Sender: FDA-Public Use
  Company Number: CN-ROCHE-2220244

PATIENT
  Age: 44 Year
  Sex: Female
  Weight: 46 kg

DRUGS (44)
  1. PALONOSETRON HYDROCHLORIDE. [Concomitant]
     Active Substance: PALONOSETRON HYDROCHLORIDE
     Route: 065
     Dates: start: 20130917, end: 20130917
  2. STILNOX [Concomitant]
     Active Substance: ZOLPIDEM TARTRATE
     Route: 065
     Dates: start: 20130909, end: 20130911
  3. FILGRASTIM [Concomitant]
     Active Substance: FILGRASTIM
     Indication: WHITE BLOOD CELL COUNT INCREASED
     Route: 065
     Dates: start: 20140113, end: 20140115
  4. FILGRASTIM [Concomitant]
     Active Substance: FILGRASTIM
     Route: 065
     Dates: start: 20140113, end: 20140113
  5. PROMETHAZINE HYDROCHLORIDE. [Concomitant]
     Active Substance: PROMETHAZINE HYDROCHLORIDE
     Route: 065
     Dates: start: 20130930, end: 20130930
  6. COMPOUND GLYCYRRHIZIN [CYSTEINE HYDROCHLORIDE;GLYCINE;GLYCYRRHIZIC ACI [Concomitant]
     Route: 065
     Dates: start: 20130922, end: 20130925
  7. OXYCODONE;PARACETAMOL [Concomitant]
     Active Substance: ACETAMINOPHEN\OXYCODONE HYDROCHLORIDE
     Indication: PAIN
     Route: 065
     Dates: start: 20130926, end: 20130926
  8. ACYCLOVIR [ACICLOVIR] [Concomitant]
     Active Substance: ACYCLOVIR
     Indication: INTERSTITIAL LUNG DISEASE
     Route: 065
     Dates: start: 20131202, end: 20131208
  9. FILGRASTIM [Concomitant]
     Active Substance: FILGRASTIM
     Route: 065
     Dates: start: 201311, end: 201311
  10. DUPHALAC [Concomitant]
     Active Substance: LACTULOSE
     Route: 065
     Dates: start: 20130920, end: 20130923
  11. POLYENE PHOSPHATIDYLCHOLINE [Concomitant]
     Active Substance: PHOSPHOLIPID
     Route: 065
     Dates: start: 20130922, end: 20130925
  12. AMBROXOL HYDROCHLORIDE [Concomitant]
     Active Substance: AMBROXOL HYDROCHLORIDE
     Indication: INTERSTITIAL LUNG DISEASE
     Route: 065
     Dates: start: 20131205, end: 20131208
  13. THYMOPENTIN [Concomitant]
     Active Substance: THYMOPENTIN
     Indication: INTERSTITIAL LUNG DISEASE
     Route: 065
     Dates: start: 20131205, end: 20131208
  14. COMPOUND CHLORHEXIDINE GARGLE [Concomitant]
     Indication: ORAL INFECTION
     Dosage: FLUID
     Route: 065
     Dates: start: 20130925, end: 20130925
  15. OBINUTUZUMAB. [Suspect]
     Active Substance: OBINUTUZUMAB
     Indication: NON-HODGKIN^S LYMPHOMA
     Dosage: ADMINISTERED ON DAY 1, 8, AND 15 OF CYCLE 1 AND THEN ON DAY 1 OF EACH SUBSEQUENT CYCLE.?MOST RECENT
     Route: 042
     Dates: start: 20130916
  16. DOXORUBICIN [Suspect]
     Active Substance: DOXORUBICIN
     Indication: NON-HODGKIN^S LYMPHOMA
     Dosage: ON DAY 1 OF EACH CYCLE.?MOST RECENT DOSE TAKEN PRIOR TO SAE MYELOSUPPRESSION EPISODE 1 AND LIFE THRE
     Route: 042
     Dates: start: 20130917
  17. OMEPRAZOLE. [Concomitant]
     Active Substance: OMEPRAZOLE
     Route: 065
     Dates: start: 20130917, end: 20130921
  18. FILGRASTIM [Concomitant]
     Active Substance: FILGRASTIM
     Route: 065
     Dates: start: 20131223, end: 20131223
  19. COMPOUND PARACETAMOL [Concomitant]
     Route: 065
     Dates: start: 20130916, end: 20130916
  20. COMPOUND PARACETAMOL [Concomitant]
     Route: 065
     Dates: start: 20130930, end: 20130930
  21. PALONOSETRON HYDROCHLORIDE. [Concomitant]
     Active Substance: PALONOSETRON HYDROCHLORIDE
     Route: 065
     Dates: start: 20131224, end: 20131224
  22. LACTATED RINGERS SOLUTION [Concomitant]
     Active Substance: CALCIUM CHLORIDE\POTASSIUM CHLORIDE\SODIUM CHLORIDE\SODIUM LACTATE
     Route: 065
     Dates: start: 20130912, end: 20130912
  23. LEVOFLOXACIN. [Concomitant]
     Active Substance: LEVOFLOXACIN
     Indication: INFECTION PROPHYLAXIS
     Route: 065
     Dates: start: 20130926, end: 20130926
  24. GLYCERINE [Concomitant]
     Active Substance: GLYCERIN
     Dosage: ENEMA
     Route: 065
     Dates: start: 20131227, end: 20131227
  25. FILGRASTIM [Concomitant]
     Active Substance: FILGRASTIM
     Route: 065
     Dates: start: 20130924, end: 20130927
  26. PROMETHAZINE HYDROCHLORIDE. [Concomitant]
     Active Substance: PROMETHAZINE HYDROCHLORIDE
     Route: 065
     Dates: start: 20130916, end: 20130916
  27. MYRTOL [Concomitant]
     Active Substance: HERBALS
     Indication: PRODUCTIVE COUGH
     Route: 065
     Dates: start: 20131217, end: 20131221
  28. OMEPRAZOLE. [Concomitant]
     Active Substance: OMEPRAZOLE
     Route: 065
     Dates: start: 20140116, end: 20140120
  29. OMEPRAZOLE. [Concomitant]
     Active Substance: OMEPRAZOLE
     Route: 065
     Dates: start: 20131209, end: 20131217
  30. FILGRASTIM [Concomitant]
     Active Substance: FILGRASTIM
     Indication: WHITE BLOOD CELL COUNT INCREASED
     Route: 065
     Dates: start: 20131227, end: 20131227
  31. COMPOUND PARACETAMOL [Concomitant]
     Route: 065
     Dates: start: 20131223, end: 20131223
  32. CYCLOPHOSPHAMIDE. [Suspect]
     Active Substance: CYCLOPHOSPHAMIDE
     Indication: NON-HODGKIN^S LYMPHOMA
     Dosage: ON DAY 1 OF EACH CYCLE.?MOST RECENT DOSE TAKEN PRIOR TO SAE MYELOSUPPRESSION EPISODE 1 AND LIFE THRE
     Route: 042
     Dates: start: 20130917
  33. OMEPRAZOLE. [Concomitant]
     Active Substance: OMEPRAZOLE
     Route: 065
     Dates: start: 20131218, end: 20140106
  34. PALONOSETRON HYDROCHLORIDE. [Concomitant]
     Active Substance: PALONOSETRON HYDROCHLORIDE
     Indication: PROPHYLAXIS OF NAUSEA AND VOMITING
     Route: 065
     Dates: start: 20140116, end: 20140116
  35. AZITHROMYCIN ANHYDROUS. [Concomitant]
     Active Substance: AZITHROMYCIN ANHYDROUS
     Route: 065
     Dates: start: 20131209, end: 20131217
  36. VANCOMYCIN [Concomitant]
     Active Substance: VANCOMYCIN
     Indication: INTERSTITIAL LUNG DISEASE
     Route: 065
     Dates: start: 20131207, end: 20131208
  37. CEFODIZIME [Concomitant]
     Active Substance: CEFODIZIME SODIUM
     Indication: INTERSTITIAL LUNG DISEASE
     Route: 065
     Dates: start: 20131202, end: 20131203
  38. VINCRISTINE [Suspect]
     Active Substance: VINCRISTINE
     Indication: NON-HODGKIN^S LYMPHOMA
     Dosage: INTRAVENOUS PUSH; MAXIMUM 2 MG?ON DAY 1 OF EACH CYCLE.?MOST RECENT DOSE TAKEN PRIOR TO SAE MYELOSUPP
     Route: 042
     Dates: start: 20130917
  39. GLYCERINE [Concomitant]
     Active Substance: GLYCERIN
     Dosage: ENEMA
     Route: 065
     Dates: start: 20130922, end: 20130923
  40. PROMETHAZINE HYDROCHLORIDE. [Concomitant]
     Active Substance: PROMETHAZINE HYDROCHLORIDE
     Indication: SEDATION
     Dosage: NEEDLE
     Route: 065
     Dates: start: 20140115, end: 20140115
  41. LANSOPRAZOLE. [Concomitant]
     Active Substance: LANSOPRAZOLE
     Indication: PROPHYLAXIS OF NAUSEA AND VOMITING
     Route: 065
     Dates: start: 20140116, end: 20140116
  42. INDOMETACIN [Concomitant]
     Active Substance: INDOMETHACIN
     Indication: SEDATION
     Route: 065
     Dates: start: 20131209, end: 20131209
  43. BIAPENEM [Concomitant]
     Active Substance: BIAPENEM
     Indication: INTERSTITIAL LUNG DISEASE
     Route: 065
     Dates: start: 20131203, end: 20131208
  44. COMPOUND PARACETAMOL [Concomitant]
     Indication: PAIN
     Route: 065
     Dates: start: 20140115, end: 20140115

REACTIONS (3)
  - Bone marrow failure [Recovered/Resolved]
  - Neutropenia [Recovered/Resolved]
  - Leukopenia [Recovered/Resolved]

NARRATIVE: CASE EVENT DATE: 20130924
